FAERS Safety Report 10740081 (Version 1)
Quarter: 2015Q1

REPORT INFORMATION
  Report Type: Spontaneous
  Country: IT (occurrence: IT)
  Receive Date: 20150127
  Receipt Date: 20150127
  Transmission Date: 20150721
  Serious: Yes (Other)
  Sender: FDA-Public Use
  Company Number: IT-ROCHE-1524206

PATIENT
  Age: 62 Year
  Sex: Female
  Weight: 64 kg

DRUGS (1)
  1. ZELBORAF [Suspect]
     Active Substance: VEMURAFENIB
     Indication: METASTATIC MALIGNANT MELANOMA
     Dosage: 240 MG FILM-COATED TABLET 56 TABLETS
     Route: 048
     Dates: start: 20141029, end: 20150116

REACTIONS (5)
  - Stomatitis [Recovering/Resolving]
  - Erythema [Recovering/Resolving]
  - Hyperkeratosis lenticularis perstans [Recovering/Resolving]
  - Vaginal inflammation [Recovering/Resolving]
  - Pruritus [Recovering/Resolving]

NARRATIVE: CASE EVENT DATE: 20141202
